FAERS Safety Report 6956503-9 (Version None)
Quarter: 2010Q3

REPORT INFORMATION
  Report Type: 
  Country: None (occurrence: None)
  Receive Date: 20100830
  Receipt Date: 20100816
  Transmission Date: 20110219
  Serious: Yes (Life-Threatening, Hospitalization)
  Sender: FDA-Public Use
  Company Number: JP-MYLANLABS-2010S1014852

PATIENT
  Age: 82 Year
  Sex: Male
  Weight: 75 kg

DRUGS (11)
  1. BAKUMONDOUTO [Suspect]
     Indication: ASTHMA
     Dosage: 9.0 G/DAY CONTAINING 0.44 G/DAY OF GLYCYRRHIZA
     Route: 065
  2. GARENOXACIN [Suspect]
     Indication: PNEUMONIA BACTERIAL
     Dosage: 800 MG/DAY (TWICE)
     Route: 048
  3. DISOPYRAMIDE [Interacting]
     Indication: ARRHYTHMIA
     Route: 065
  4. BICALUTAMIDE [Interacting]
     Indication: PROSTATE CANCER
     Dosage: 80 MG/DAY
     Route: 065
  5. SILODOSIN [Interacting]
     Indication: HYPERTROPHY
     Route: 065
  6. IMIDAPRIL [Concomitant]
     Indication: HYPERTENSION
     Dosage: 5 MG/DAY
     Route: 065
  7. AMLODIPINE [Concomitant]
     Indication: HYPERTENSION
     Dosage: 5 MG/DAY
     Route: 065
  8. ISOSORBIDE MONONITRATE [Concomitant]
     Indication: ANGINA PECTORIS
     Dosage: 40 MG/DAY
     Route: 065
  9. PRAVASTATIN [Concomitant]
     Indication: HYPERLIPIDAEMIA
     Dosage: 10 MG/DAY
     Route: 065
  10. FLUTOPRAZEPAM [Concomitant]
     Indication: DEPRESSION
     Dosage: 1 MG/DAY
     Route: 065
  11. CEFOZOPRAN [Concomitant]
     Indication: PNEUMONIA BACTERIAL
     Dosage: 1.0 G/DAY (TWICE)
     Route: 042

REACTIONS (3)
  - DRUG INTERACTION [None]
  - HYPOKALAEMIA [None]
  - TORSADE DE POINTES [None]
